FAERS Safety Report 6167644-0 (Version None)
Quarter: 2009Q2

REPORT INFORMATION
  Report Type: 
  Country: None (occurrence: None)
  Receive Date: 20090424
  Receipt Date: 20090415
  Transmission Date: 20091009
  Serious: Yes (Other)
  Sender: FDA-Public Use
  Company Number: PHEH2009US03801

PATIENT
  Sex: Female

DRUGS (3)
  1. DIOVAN [Suspect]
     Dosage: 320 MG, UNK
     Route: 048
     Dates: start: 20080401
  2. DIOVAN [Suspect]
     Dosage: 160 MG, UNK
     Route: 048
  3. ASPIRIN [Concomitant]

REACTIONS (8)
  - BACK PAIN [None]
  - DISTURBANCE IN ATTENTION [None]
  - DRUG INEFFECTIVE [None]
  - ESCHERICHIA URINARY TRACT INFECTION [None]
  - FATIGUE [None]
  - FEELING ABNORMAL [None]
  - RENAL CYST [None]
  - URINARY RETENTION [None]
